FAERS Safety Report 7365833-0 (Version None)
Quarter: 2011Q1

REPORT INFORMATION
  Report Type: 
  Country: None (occurrence: None)
  Receive Date: 20110322
  Receipt Date: 20110311
  Transmission Date: 20110831
  Serious: Yes (Hospitalization, Other)
  Sender: FDA-Public Use
  Company Number: US-AMGEN-USASP2011010344

PATIENT
  Age: 67 Year
  Sex: Female

DRUGS (8)
  1. FISH OIL [Concomitant]
     Dosage: UNK
  2. VITACAL                            /01535001/ [Concomitant]
  3. HYDROCHLOROTHIAZIDE [Concomitant]
     Dosage: UNK
  4. CALTRATE                           /00108001/ [Concomitant]
     Dosage: UNK
  5. ENBREL [Suspect]
     Indication: RHEUMATOID ARTHRITIS
     Dosage: 50 MG, WEEKLY
     Route: 058
     Dates: start: 20091001, end: 20101201
  6. DIAZEPAM [Concomitant]
     Dosage: UNK
  7. MULTI-VITAMINS [Concomitant]
     Dosage: UNK
  8. PREDNISONE [Concomitant]
     Dosage: UNK

REACTIONS (1)
  - UTERINE CANCER [None]
